FAERS Safety Report 8407553-7 (Version None)
Quarter: 2012Q2

REPORT INFORMATION
  Report Type: 
  Country: None (occurrence: None)
  Receive Date: 20120604
  Receipt Date: 20120531
  Transmission Date: 20120825
  Serious: Yes (Life-Threatening)
  Sender: FDA-Public Use
  Company Number: AU-ASTRAZENECA-2012SE36096

PATIENT
  Age: 20 Year
  Sex: Male

DRUGS (5)
  1. DEXAMETHASONE [Suspect]
  2. FENTANYL [Suspect]
     Route: 065
  3. PROPOFOL [Suspect]
     Route: 042
  4. CEFTRIAXONE [Suspect]
     Route: 065
     Dates: start: 20120412
  5. NIMBEX [Suspect]
     Route: 065
     Dates: start: 20120412

REACTIONS (4)
  - FLUSHING [None]
  - DYSPNOEA [None]
  - ANAPHYLACTIC REACTION [None]
  - APNOEA [None]
